FAERS Safety Report 14338063 (Version 1)
Quarter: 2017Q4

REPORT INFORMATION
  Report Type: Spontaneous
  Country: GB (occurrence: GB)
  Receive Date: 20171229
  Receipt Date: 20171229
  Transmission Date: 20180321
  Serious: Yes (Other)
  Sender: FDA-Public Use
  Company Number: GB-MYLANLABS-2017M1082673

PATIENT
  Age: 25 Year
  Sex: Female

DRUGS (1)
  1. MYCOPHENOLATE MOFETIL. [Suspect]
     Active Substance: MYCOPHENOLATE MOFETIL
     Indication: AUTOIMMUNE HEPATITIS
     Dosage: UNK

REACTIONS (5)
  - Fatigue [Unknown]
  - Jaundice [Unknown]
  - Acute hepatic failure [Unknown]
  - Ascites [Unknown]
  - Nausea [Unknown]
